FAERS Safety Report 18795734 (Version 1)
Quarter: 2021Q1

REPORT INFORMATION
  Report Type: Spontaneous
  Country: CA (occurrence: CA)
  Receive Date: 20210127
  Receipt Date: 20210127
  Transmission Date: 20210419
  Serious: Yes (Hospitalization)
  Sender: FDA-Public Use
  Company Number: CA-TEVA-2021-CA-1872552

PATIENT
  Age: 78 Year
  Sex: Female

DRUGS (12)
  1. DOVOBET [Concomitant]
     Active Substance: BETAMETHASONE\CALCIPOTRIENE
  2. FOLIC ACID. [Concomitant]
     Active Substance: FOLIC ACID
  3. CLOPIDOGREL [Suspect]
     Active Substance: CLOPIDOGREL BISULFATE
  4. ARANESP [Concomitant]
     Active Substance: DARBEPOETIN ALFA
     Dosage: SOLUTION INTRAVENOUS
  5. METOPROLOL. [Concomitant]
     Active Substance: METOPROLOL
  6. JAMP ACETYLSALICYLIC ACID [Suspect]
     Active Substance: ASPIRIN
  7. IRON SUCROSE [Concomitant]
     Active Substance: IRON SUCROSE
  8. LORAZEPAM. [Concomitant]
     Active Substance: LORAZEPAM
  9. SYSTANE PF [Concomitant]
     Active Substance: POLYETHYLENE GLYCOL 400\PROPYLENE GLYCOL
     Dosage: SOLUTION OPHTHALMIC
  10. ACETAMINOPHEN. [Concomitant]
     Active Substance: ACETAMINOPHEN
  11. LEVOTHYROXINE. [Concomitant]
     Active Substance: LEVOTHYROXINE
  12. TUMS [Concomitant]
     Active Substance: CALCIUM CARBONATE

REACTIONS (1)
  - Upper gastrointestinal haemorrhage [Unknown]
